FAERS Safety Report 17939675 (Version 1)
Quarter: 2020Q2

REPORT INFORMATION
  Report Type: Spontaneous
  Country: DE (occurrence: DE)
  Receive Date: 20200624
  Receipt Date: 20200624
  Transmission Date: 20200714
  Serious: Yes (Other)
  Sender: FDA-Public Use
  Company Number: NVSC2020DE173767

PATIENT
  Sex: Male
  Weight: 74.5 kg

DRUGS (12)
  1. OXALIPLATIN. [Suspect]
     Active Substance: OXALIPLATIN
     Indication: DIFFUSE LARGE B-CELL LYMPHOMA
     Dosage: 1ST LINE THERAPY, ACCORDING TO GEMTUZUMAB OZOGAMICIN REGIME, 3 CYCLE
     Route: 065
     Dates: start: 201508
  2. GEMCITABINE. [Suspect]
     Active Substance: GEMCITABINE
     Indication: DIFFUSE LARGE B-CELL LYMPHOMA
     Dosage: 1ST LINE THERAPY, ACCORDING TO GEMTUZUMAB OZOGAMICIN REGIME, 3 CYCLE
     Route: 065
     Dates: start: 201508
  3. OXALIPLATIN. [Suspect]
     Active Substance: OXALIPLATIN
     Dosage: 1ST LINE THERAPY, ACCORDING TO GEMTUZUMAB OZOGAMICIN REGIME, 3 CYCLE
     Route: 065
     Dates: start: 201510
  4. HYDROXYDAUNORUBICIN [Concomitant]
     Active Substance: DOXORUBICIN
     Indication: DIFFUSE LARGE B-CELL LYMPHOMA
     Dosage: UNKNOWN
     Route: 065
  5. IBRUTINIB [Suspect]
     Active Substance: IBRUTINIB
     Dosage: FURTHER LINE THERAPY
     Route: 065
     Dates: start: 201510
  6. PREDNISONE. [Concomitant]
     Active Substance: PREDNISONE
     Indication: DIFFUSE LARGE B-CELL LYMPHOMA
     Dosage: UNKNOWN
     Route: 065
  7. MABTHERA [Suspect]
     Active Substance: RITUXIMAB
     Dosage: UNKNOWN
     Route: 065
     Dates: start: 2015
  8. ONCOVIN [Concomitant]
     Active Substance: VINCRISTINE SULFATE
     Indication: DIFFUSE LARGE B-CELL LYMPHOMA
     Dosage: UNKNOWN
     Route: 065
  9. MABTHERA [Suspect]
     Active Substance: RITUXIMAB
     Indication: DIFFUSE LARGE B-CELL LYMPHOMA
     Dosage: UNKNOWN
     Route: 065
     Dates: start: 2014
  10. IBRUTINIB [Suspect]
     Active Substance: IBRUTINIB
     Indication: DIFFUSE LARGE B-CELL LYMPHOMA
     Dosage: FURTHER LINE THERAPY
     Route: 065
     Dates: start: 201508
  11. GEMCITABINE. [Suspect]
     Active Substance: GEMCITABINE
     Dosage: 1ST LINE THERAPY, ACCORDING TO GEMTUZUMAB OZOGAMICIN REGIME, 3 CYCLE
     Route: 065
     Dates: start: 201510
  12. CYCLOPHOSPHAMIDE. [Concomitant]
     Active Substance: CYCLOPHOSPHAMIDE
     Indication: DIFFUSE LARGE B-CELL LYMPHOMA
     Dosage: UNKNOWN
     Route: 065

REACTIONS (2)
  - Graft versus host disease [Unknown]
  - Neuropathy peripheral [Unknown]
